APPROVED DRUG PRODUCT: GRAFAPEX
Active Ingredient: TREOSULFAN
Strength: 5GM/VIAL
Dosage Form/Route: POWDER;INTRAVENOUS
Application: N214759 | Product #002
Applicant: MEDEXUS PHARMA INC
Approved: Jan 21, 2025 | RLD: Yes | RS: Yes | Type: RX

PATENTS:
Patent 7199162 | Expires: Mar 21, 2026

EXCLUSIVITY:
Code: NCE | Date: Jan 21, 2030
Code: ODE-513 | Date: Jan 21, 2032
Code: ODE-514 | Date: Jan 21, 2032